FAERS Safety Report 6405908-3 (Version None)
Quarter: 2009Q4

REPORT INFORMATION
  Report Type: 
  Country: None (occurrence: None)
  Receive Date: 20091019
  Receipt Date: 20091008
  Transmission Date: 20100525
  Serious: Yes (Hospitalization)
  Sender: FDA-Public Use
  Company Number: US-JNJFOC-20091003675

PATIENT
  Sex: Female
  Weight: 55 kg

DRUGS (11)
  1. INFLIXIMAB [Suspect]
     Indication: CROHN'S DISEASE
     Route: 042
  2. ANTACID TAB [Concomitant]
  3. PREDNISONE TAB [Concomitant]
  4. METHOTREXATE [Concomitant]
  5. CIMZIA [Concomitant]
  6. ANTIBIOTICS [Concomitant]
     Indication: INFLAMMATORY BOWEL DISEASE
  7. 5-AMINOSALICYLIC ACID [Concomitant]
     Route: 048
  8. LIALDA [Concomitant]
  9. ACIPHEX [Concomitant]
  10. FOLIC ACID [Concomitant]
  11. FLAGYL [Concomitant]

REACTIONS (1)
  - CROHN'S DISEASE [None]
